FAERS Safety Report 21332771 (Version 3)
Quarter: 2022Q4

REPORT INFORMATION
  Report Type: Spontaneous
  Country: US (occurrence: US)
  Receive Date: 20220914
  Receipt Date: 20221221
  Transmission Date: 20230113
  Serious: No
  Sender: FDA-Public Use
  Company Number: US-BRISTOL-MYERS SQUIBB COMPANY-2022-105904

PATIENT
  Age: 73 Year
  Sex: Male

DRUGS (2)
  1. POMALYST [Suspect]
     Active Substance: POMALIDOMIDE
     Indication: Plasma cell myeloma
     Dosage: TAKE 1 CAPSULE (4 MG TOTAL) BY MOUTH ONCE DAILY FOR 21 DAYS ON, 7 DAYS OFF EVERY 28 DAYS
     Route: 048
     Dates: start: 20220908
  2. POMALYST [Suspect]
     Active Substance: POMALIDOMIDE
     Dosage: FREQ:  DAILY ON DAYS 1-21 FOLLOWED BY 7 DAYS OFF EVERY 28 DAYS
     Route: 048
     Dates: start: 20220809

REACTIONS (2)
  - Nervousness [Unknown]
  - Chronic obstructive pulmonary disease [Unknown]
